FAERS Safety Report 7889463-7 (Version None)
Quarter: 2011Q4

REPORT INFORMATION
  Report Type: 
  Country: None (occurrence: None)
  Receive Date: 20111103
  Receipt Date: 20111028
  Transmission Date: 20120403
  Serious: Yes (Hospitalization, Other)
  Sender: FDA-Public Use
  Company Number: PHHO2011US16328

PATIENT
  Sex: Male
  Weight: 86.621 kg

DRUGS (7)
  1. OXYGEN [Concomitant]
     Indication: SLEEP APNOEA SYNDROME
     Dosage: 2 LPM, QHS
     Dates: start: 20080314
  2. BLINDED NO TREATMENT RECEIVED [Suspect]
     Indication: CHRONIC OBSTRUCTIVE PULMONARY DISEASE
     Dosage: DOUBLE BLINDED
     Dates: start: 20101117, end: 20110923
  3. BLINDED QVA149 [Suspect]
     Indication: CHRONIC OBSTRUCTIVE PULMONARY DISEASE
     Dosage: DOUBLE BLINDED
     Dates: start: 20101117, end: 20110923
  4. BLINDED TIOTROPIUM [Suspect]
     Indication: CHRONIC OBSTRUCTIVE PULMONARY DISEASE
     Dosage: DOUBLE BLINDED
     Dates: start: 20101117, end: 20110923
  5. TRAMADOL HCL [Suspect]
     Indication: BACK PAIN
     Dosage: 50 MG, PRN
     Route: 048
     Dates: start: 20110710
  6. BLINDED NVA237 [Suspect]
     Indication: CHRONIC OBSTRUCTIVE PULMONARY DISEASE
     Dosage: DOUBLE BLINDED
     Dates: start: 20101117, end: 20110923
  7. VANCOMYCIN [Suspect]
     Dosage: UNK
     Route: 042

REACTIONS (6)
  - CONCOMITANT DISEASE PROGRESSION [None]
  - ACUTE RESPIRATORY DISTRESS SYNDROME [None]
  - POST PROCEDURAL COMPLICATION [None]
  - DELIRIUM [None]
  - CONDITION AGGRAVATED [None]
  - SPINAL OSTEOARTHRITIS [None]
